FAERS Safety Report 4916380-4 (Version None)
Quarter: 2006Q1

REPORT INFORMATION
  Report Type: 
  Country: None (occurrence: None)
  Receive Date: 20060217
  Receipt Date: 20050921
  Transmission Date: 20060701
  Serious: Yes (Hospitalization)
  Sender: FDA-Public Use
  Company Number: US-MERCK-0509USA03421

PATIENT
  Age: 55 Year
  Sex: Female
  Weight: 113 kg

DRUGS (4)
  1. VIOXX [Suspect]
     Route: 048
     Dates: start: 20001103, end: 20040929
  2. GLUCOPHAGE [Concomitant]
     Route: 065
  3. ACCUPRIL [Concomitant]
     Route: 065
  4. ESTRACE [Concomitant]
     Route: 065

REACTIONS (4)
  - CEREBROVASCULAR ACCIDENT [None]
  - HEMIPARESIS [None]
  - SLEEP APNOEA SYNDROME [None]
  - UPPER RESPIRATORY TRACT CONGESTION [None]
